FAERS Safety Report 7151956-8 (Version None)
Quarter: 2010Q4

REPORT INFORMATION
  Report Type: 
  Country: None (occurrence: None)
  Receive Date: 20101210
  Receipt Date: 20101202
  Transmission Date: 20110411
  Serious: Yes (Death)
  Sender: FDA-Public Use
  Company Number: IE-AMGEN-IRLSP2010005077

PATIENT

DRUGS (7)
  1. NPLATE [Suspect]
     Indication: THROMBOCYTOPENIA
     Dosage: UNK UNK, QWK
     Dates: start: 20101018, end: 20101101
  2. METHYLPREDNISOLONE [Concomitant]
     Indication: THROMBOCYTOPENIA
  3. RITUXIMAB [Concomitant]
     Indication: THROMBOCYTOPENIA
  4. CYCLOPHOSPHAMIDE [Concomitant]
     Indication: THROMBOCYTOPENIA
  5. VINCRISTINE [Concomitant]
     Indication: THROMBOCYTOPENIA
  6. IMMUNOGLOBULINS [Concomitant]
     Indication: THROMBOCYTOPENIA
  7. MYCOPHENOLATE MOFETIL [Concomitant]
     Indication: THROMBOCYTOPENIA

REACTIONS (1)
  - DEATH [None]
